FAERS Safety Report 4694062-4 (Version None)
Quarter: 2005Q2

REPORT INFORMATION
  Report Type: 
  Country: None (occurrence: None)
  Receive Date: 20050616
  Receipt Date: 20050606
  Transmission Date: 20051028
  Serious: Yes (Other)
  Sender: FDA-Public Use
  Company Number: 2005086013

PATIENT
  Age: 24 Year
  Sex: Male
  Weight: 89.3586 kg

DRUGS (6)
  1. GEODON [Suspect]
     Indication: BIPOLAR DISORDER
     Dosage: 320 MG (80 MG, 2 IN 1 D), ORAL
     Route: 048
     Dates: start: 20050523, end: 20050606
  2. GEODON [Suspect]
     Indication: MANIA
     Dosage: 320 MG (80 MG, 2 IN 1 D), ORAL
     Route: 048
     Dates: start: 20050523, end: 20050606
  3. ESKALITH [Concomitant]
  4. DEPAKOTE [Concomitant]
  5. ATIVAN [Concomitant]
  6. HALADOL (HALOPERIDOL) [Concomitant]

REACTIONS (6)
  - BLOOD BICARBONATE INCREASED [None]
  - BLOOD CREATININE INCREASED [None]
  - BLOOD GLUCOSE DECREASED [None]
  - OCULOGYRATION [None]
  - RED CELL DISTRIBUTION WIDTH INCREASED [None]
  - WHITE BLOOD CELL COUNT DECREASED [None]
